FAERS Safety Report 4585472-4 (Version None)
Quarter: 2005Q1

REPORT INFORMATION
  Report Type: 
  Country: None (occurrence: None)
  Receive Date: 20050214
  Receipt Date: 20031117
  Transmission Date: 20050727
  Serious: Yes (Other)
  Sender: FDA-Public Use
  Company Number: GXKR2003DE00592

PATIENT
  Age: 48 Year
  Sex: Male

DRUGS (11)
  1. FLUCONAZOLE [Suspect]
     Indication: CANDIDIASIS
     Dosage: 50 MG, ORAL
     Route: 048
  2. CLARITHROMYCIN [Suspect]
     Indication: HIV INFECTION
     Dosage: 1000 MG
  3. BUDESONIDE (BUDESONIDE) [Suspect]
     Indication: RECTAL HAEMORRHAGE
     Dosage: 9 MG, ORAL
     Route: 048
  4. RITONAVIR [Suspect]
     Indication: HIV INFECTION
     Dosage: 800 MG
  5. LAMIVUDINE [Concomitant]
  6. DIDANOSINE (DIDANOSINE, DIDEOXYINOSINE) [Concomitant]
  7. ETHAMBUTOL (ETHAMBUTOL) [Concomitant]
  8. CO-TRIMOXAZOLE (CO-TRIMOXAZOLE) [Concomitant]
  9. GANCICLOVIR SODIUM [Concomitant]
  10. SPIRONOLACTONE [Concomitant]
  11. MESALAMINE [Concomitant]

REACTIONS (2)
  - DRUG INTERACTION [None]
  - HEPATITIS TOXIC [None]
